FAERS Safety Report 8232535-8 (Version None)
Quarter: 2012Q1

REPORT INFORMATION
  Report Type: 
  Country: None (occurrence: None)
  Receive Date: 20120323
  Receipt Date: 20120309
  Transmission Date: 20120608
  Serious: Yes (Other)
  Sender: FDA-Public Use
  Company Number: AU-PFIZER INC-2012064852

PATIENT
  Age: 25 Year
  Sex: Female

DRUGS (5)
  1. CANNABIS [Suspect]
     Indication: MARITAL PROBLEM
     Dosage: UNK
     Route: 065
  2. DIAZEPAM [Suspect]
  3. VENLAFAXINE HCL [Suspect]
     Indication: MARITAL PROBLEM
     Dosage: 300 MG, 1X/DAY
     Route: 065
  4. VENLAFAXINE HCL [Suspect]
     Indication: DEPRESSION
  5. CITALOPRAM HYDROBROMIDE [Suspect]
     Indication: MARITAL PROBLEM

REACTIONS (8)
  - SUICIDE ATTEMPT [None]
  - ATTENTION-SEEKING BEHAVIOUR [None]
  - SELF-INJURIOUS IDEATION [None]
  - DRUG DEPENDENCE [None]
  - DISTURBANCE IN SOCIAL BEHAVIOUR [None]
  - AGGRESSION [None]
  - AKATHISIA [None]
  - DRUG INTERACTION [None]
